FAERS Safety Report 23715446 (Version 1)
Quarter: 2024Q2

REPORT INFORMATION
  Report Type: Report from Study
  Country: BR (occurrence: BR)
  Receive Date: 20240407
  Receipt Date: 20240407
  Transmission Date: 20240716
  Serious: Yes (Death, Hospitalization)
  Sender: FDA-Public Use
  Company Number: BR-ABBVIE-5708373

PATIENT
  Age: 73 Year
  Sex: Female
  Weight: 60 kg

DRUGS (1)
  1. RINVOQ [Suspect]
     Active Substance: UPADACITINIB
     Indication: Rheumatoid arthritis
     Dosage: 1 TABLET
     Route: 048
     Dates: start: 20210804, end: 20230615

REACTIONS (1)
  - Diverticulitis [Fatal]

NARRATIVE: CASE EVENT DATE: 20230516
